FAERS Safety Report 7609801-X (Version None)
Quarter: 2011Q3

REPORT INFORMATION
  Report Type: 
  Country: None (occurrence: None)
  Receive Date: 20110714
  Receipt Date: 20110712
  Transmission Date: 20111222
  Serious: Yes (Other)
  Sender: FDA-Public Use
  Company Number: JP-PFIZER INC-2011158741

PATIENT

DRUGS (2)
  1. LYRICA [Suspect]
     Dosage: 150 MG DAILY
     Route: 048
     Dates: start: 20110201, end: 20110303
  2. LYRICA [Suspect]
     Dosage: 300 MG DAILY
     Route: 048
     Dates: start: 20110304

REACTIONS (4)
  - NECK PAIN [None]
  - DIZZINESS [None]
  - DEAFNESS [None]
  - SOMNOLENCE [None]
